FAERS Safety Report 11669525 (Version 1)
Quarter: 2015Q4

REPORT INFORMATION
  Report Type: Spontaneous
  Country: US (occurrence: US)
  Receive Date: 20151027
  Receipt Date: 20151027
  Transmission Date: 20160304
  Serious: No
  Sender: FDA-Public Use
  Company Number: US-ELI_LILLY_AND_COMPANY-US201003006002

PATIENT
  Sex: Female

DRUGS (4)
  1. FORTEO [Suspect]
     Active Substance: TERIPARATIDE
     Indication: OSTEOPOROSIS
     Dosage: 20 UG, DAILY (1/D)
     Dates: start: 200908, end: 2010
  2. CALCIUM [Concomitant]
     Active Substance: CALCIUM
     Indication: MINERAL SUPPLEMENTATION
     Dosage: 1200 MG, DAILY (1/D)
     Dates: start: 2010
  3. FORTEO [Suspect]
     Active Substance: TERIPARATIDE
     Dosage: 20 UG, DAILY (1/D)
     Dates: start: 2010
  4. VITAMIN D [Concomitant]
     Active Substance: CHOLECALCIFEROL
     Dosage: 50000 MG, WEEKLY (1/W)
     Dates: start: 2010

REACTIONS (14)
  - Arthralgia [Not Recovered/Not Resolved]
  - Chest discomfort [Unknown]
  - Depression [Unknown]
  - Muscular weakness [Not Recovered/Not Resolved]
  - Fatigue [Unknown]
  - Gait disturbance [Unknown]
  - Dizziness [Unknown]
  - Spinal pain [Unknown]
  - Pain in extremity [Unknown]
  - Asthenia [Unknown]
  - Headache [Unknown]
  - Dysstasia [Unknown]
  - Itching scar [Not Recovered/Not Resolved]
  - Crying [Unknown]

NARRATIVE: CASE EVENT DATE: 2010
